FAERS Safety Report 17498407 (Version 1)
Quarter: 2020Q1

REPORT INFORMATION
  Report Type: Spontaneous
  Country: PT (occurrence: PT)
  Receive Date: 20200304
  Receipt Date: 20200304
  Transmission Date: 20200409
  Serious: Yes (Other)
  Sender: FDA-Public Use
  Company Number: PT-AMGEN-PRTSP2020032906

PATIENT

DRUGS (1)
  1. XGEVA [Suspect]
     Active Substance: DENOSUMAB
     Indication: METASTASES TO BONE
     Dosage: UNK
     Route: 065

REACTIONS (7)
  - Spinal cord compression [Unknown]
  - Musculoskeletal pain [Unknown]
  - Pathological fracture [Unknown]
  - Hypocalcaemia [Unknown]
  - Nephropathy toxic [Unknown]
  - Gastrointestinal disorder [Unknown]
  - Hypercalcaemia [Unknown]
